FAERS Safety Report 14221016 (Version 2)
Quarter: 2018Q1

REPORT INFORMATION
  Report Type: Spontaneous
  Country: US (occurrence: US)
  Receive Date: 20171124
  Receipt Date: 20180102
  Transmission Date: 20180508
  Serious: Yes (Other)
  Sender: FDA-Public Use
  Company Number: US-PFIZER INC-2017503024

PATIENT
  Age: 60 Year
  Sex: Female

DRUGS (3)
  1. ZINC. [Suspect]
     Active Substance: ZINC
     Dosage: UNK
  2. NEURONTIN [Suspect]
     Active Substance: GABAPENTIN
     Dosage: UNK
  3. BETADINE [Suspect]
     Active Substance: POVIDONE-IODINE
     Dosage: UNK

REACTIONS (2)
  - Drug hypersensitivity [Unknown]
  - Anaphylactic shock [Unknown]
